FAERS Safety Report 13394469 (Version 1)
Quarter: 2017Q2

REPORT INFORMATION
  Report Type: Spontaneous
  Country: CA (occurrence: CA)
  Receive Date: 20170403
  Receipt Date: 20170403
  Transmission Date: 20170830
  Serious: Yes (Other)
  Sender: FDA-Public Use
  Company Number: CA-TEVA-754554ACC

PATIENT
  Age: 65 Year
  Sex: Female
  Weight: 68 kg

DRUGS (13)
  1. LANSOPRAZOLE. [Concomitant]
     Active Substance: LANSOPRAZOLE
  2. MAXERAN-10 (10MG TABLET) [Concomitant]
  3. DEXAMETHASONE. [Concomitant]
     Active Substance: DEXAMETHASONE
  4. TELMISARTAN. [Concomitant]
     Active Substance: TELMISARTAN
  5. ZOFRAN [Concomitant]
     Active Substance: ONDANSETRON HYDROCHLORIDE
  6. PROCYTOX 2000MG/VIAL [Suspect]
     Active Substance: CYCLOPHOSPHAMIDE
     Indication: ADJUVANT THERAPY
     Route: 042
  7. DOXORUBICIN INJECTION [Suspect]
     Active Substance: DOXORUBICIN
     Indication: ADJUVANT THERAPY
     Route: 042
  8. EMEND [Concomitant]
     Active Substance: APREPITANT
  9. ROSUVASTATIN. [Concomitant]
     Active Substance: ROSUVASTATIN
  10. AMLODIPINE [Concomitant]
     Active Substance: AMLODIPINE BESYLATE
  11. MULTIVITAMINES [Concomitant]
     Active Substance: VITAMINS
  12. VITAMIN D [Concomitant]
     Active Substance: CHOLECALCIFEROL
  13. PROPRANOLOL [Concomitant]
     Active Substance: PROPRANOLOL HYDROCHLORIDE

REACTIONS (10)
  - Pancreatitis [Recovered/Resolved]
  - Dyspnoea [Recovered/Resolved]
  - Migraine [Recovered/Resolved]
  - Abdominal pain [Recovered/Resolved]
  - Hepatic steatosis [Recovered/Resolved]
  - Laboratory test [Recovered/Resolved]
  - Chest discomfort [Recovered/Resolved]
  - Hypertension [Recovered/Resolved]
  - Injection site erythema [Recovered/Resolved]
  - Pharyngeal oedema [Recovered/Resolved]
